FAERS Safety Report 6454466-6 (Version None)
Quarter: 2009Q4

REPORT INFORMATION
  Report Type: 
  Country: None (occurrence: None)
  Receive Date: 20091124
  Receipt Date: 20091105
  Transmission Date: 20100525
  Serious: Yes (Hospitalization, Other)
  Sender: FDA-Public Use
  Company Number: US-SANOFI-AVENTIS-200916873US

PATIENT
  Age: 77 Year
  Sex: Male
  Weight: 76.2 kg

DRUGS (2)
  1. OPTICLICK [Suspect]
     Dates: start: 20070101
  2. INSULIN GLARGINE [Suspect]
     Dosage: DOSE:14 UNIT(S)
     Route: 058
     Dates: start: 20070101

REACTIONS (5)
  - BLOOD POTASSIUM INCREASED [None]
  - BRONCHOPNEUMONIA [None]
  - HEART RATE DECREASED [None]
  - INJECTION SITE PAIN [None]
  - RESPIRATORY DISORDER [None]
